FAERS Safety Report 6638993-4 (Version None)
Quarter: 2010Q1

REPORT INFORMATION
  Report Type: 
  Country: None (occurrence: None)
  Receive Date: 20100317
  Receipt Date: 20100309
  Transmission Date: 20100710
  Serious: Yes (Other)
  Sender: FDA-Public Use
  Company Number: GB-ASTRAZENECA-2010SE10280

PATIENT
  Age: 38 Year
  Sex: Male

DRUGS (3)
  1. SEROQUEL [Suspect]
     Indication: HYPOMANIA
     Route: 048
     Dates: start: 20040101
  2. LAMOTRIGINE [Concomitant]
     Indication: EPILEPSY
  3. KEPPRA [Concomitant]
     Indication: EPILEPSY

REACTIONS (1)
  - FACIAL SPASM [None]
